FAERS Safety Report 10155577 (Version 2)
Quarter: 2014Q2

REPORT INFORMATION
  Report Type: Spontaneous
  Country: US (occurrence: US)
  Receive Date: 20140506
  Receipt Date: 20140630
  Transmission Date: 20141212
  Serious: No
  Sender: FDA-Public Use
  Company Number: US-B.I. PHARMACEUTICALS,INC./RIDGEFIELD-2014-BI-19645BP

PATIENT
  Age: 70 Year
  Sex: Female
  Weight: 64 kg

DRUGS (9)
  1. COMBIVENT [Suspect]
     Indication: CHRONIC OBSTRUCTIVE PULMONARY DISEASE
     Dosage: DOSE PER APLLICATION: 20 MCG/100 MCG; DAILY DOSE: 80 MCG/400 MCG
     Route: 055
     Dates: start: 201307
  2. LORATADINE [Concomitant]
     Indication: SEASONAL ALLERGY
     Dosage: 10 MG
     Route: 048
  3. OMEPRAZOLE [Concomitant]
     Indication: GASTROOESOPHAGEAL REFLUX DISEASE
     Dosage: 40 MG
     Route: 048
  4. AMLODIPINE [Concomitant]
     Indication: HYPERTENSION
     Dosage: 2.5 MG
     Route: 048
  5. FLOVENT [Concomitant]
     Indication: CHRONIC OBSTRUCTIVE PULMONARY DISEASE
     Dosage: FORMULATION: INHALATION AEROSOL
     Route: 055
  6. ALBUTEROL [Concomitant]
     Indication: ASTHMA
     Route: 055
  7. IBUPROFEN [Concomitant]
     Indication: BACK PAIN
     Route: 048
  8. VICODIN [Concomitant]
     Indication: BACK PAIN
     Dosage: DOSE PER APPLICATION: 5/325 MG;
     Route: 048
  9. ATORVASTATIN [Concomitant]
     Indication: BLOOD CHOLESTEROL INCREASED
     Dosage: 10 MG
     Route: 048

REACTIONS (3)
  - Dyspnoea [Not Recovered/Not Resolved]
  - Asthenia [Not Recovered/Not Resolved]
  - Wheezing [Not Recovered/Not Resolved]
